FAERS Safety Report 6129970-0 (Version None)
Quarter: 2009Q1

REPORT INFORMATION
  Report Type: 
  Country: None (occurrence: None)
  Receive Date: 20090323
  Receipt Date: 20090323
  Transmission Date: 20090719
  Serious: Yes (Death, Life-Threatening, Hospitalization)
  Sender: FDA-Public Use
  Company Number: None

PATIENT
  Age: 92 Year
  Sex: Female
  Weight: 54.4316 kg

DRUGS (1)
  1. LEVAQUIN [Suspect]
     Indication: URINARY TRACT INFECTION
     Dosage: 750MG ONCE PO
     Route: 048
     Dates: start: 20090304, end: 20090306

REACTIONS (4)
  - CONVULSION [None]
  - MOVEMENT DISORDER [None]
  - RESPIRATORY DISORDER [None]
  - SPEECH DISORDER [None]
